FAERS Safety Report 16406405 (Version 2)
Quarter: 2019Q4

REPORT INFORMATION
  Report Type: Spontaneous
  Country: FR (occurrence: FR)
  Receive Date: 20190607
  Receipt Date: 20191219
  Transmission Date: 20200122
  Serious: Yes (Other)
  Sender: FDA-Public Use
  Company Number: FR-MYLANLABS-2019M1052617

PATIENT
  Age: 59 Year
  Sex: Female

DRUGS (5)
  1. EMEND [Suspect]
     Active Substance: APREPITANT
     Indication: ANTIEMETIC SUPPORTIVE CARE
     Dosage: MATIN
     Route: 048
     Dates: start: 20181119, end: 20181122
  2. ONDANSETRON [Suspect]
     Active Substance: ONDANSETRON
     Indication: ANTIEMETIC SUPPORTIVE CARE
     Dosage: MATIN ET SOIR
     Route: 048
     Dates: start: 20181119, end: 20181119
  3. DEXAMETHASONE MYLAN [Suspect]
     Active Substance: DEXAMETHASONE
     Indication: ALLERGY PROPHYLAXIS
     Dosage: 20 MILLIGRAM, CYCLE
     Route: 042
     Dates: start: 20181119, end: 20181119
  4. PACLITAXEL KABI [Suspect]
     Active Substance: PACLITAXEL
     Indication: OVARIAN EPITHELIAL CANCER
     Dosage: 280 MILLIGRAM, CYCLE
     Route: 042
     Dates: start: 20181119, end: 20181119
  5. AZANTAC [Suspect]
     Active Substance: RANITIDINE HYDROCHLORIDE
     Indication: ALLERGY PROPHYLAXIS
     Dosage: 50 MILLIGRAM, CYCLE
     Route: 042
     Dates: start: 20181119, end: 20181119

REACTIONS (4)
  - Cough [Recovered/Resolved]
  - Hypersensitivity [Recovered/Resolved]
  - Erythema [Recovered/Resolved]
  - Sense of oppression [Recovered/Resolved]

NARRATIVE: CASE EVENT DATE: 20181119
